FAERS Safety Report 8347531-X (Version None)
Quarter: 2012Q2

REPORT INFORMATION
  Report Type: 
  Country: None (occurrence: None)
  Receive Date: 20120509
  Receipt Date: 20120504
  Transmission Date: 20120825
  Serious: No
  Sender: FDA-Public Use
  Company Number: US-BAYER-2012-043758

PATIENT
  Sex: Male
  Weight: 96.145 kg

DRUGS (3)
  1. VITAMIN D [Concomitant]
     Dosage: 1000 U, UNK
  2. GILENYA [Concomitant]
     Dosage: .5 MG, UNK
  3. BETASERON [Suspect]
     Dosage: .3 MG, QOD
     Route: 058

REACTIONS (1)
  - DRUG INEFFECTIVE [None]
